FAERS Safety Report 25593163 (Version 1)
Quarter: 2025Q3

REPORT INFORMATION
  Report Type: Spontaneous
  Country: US (occurrence: US)
  Receive Date: 20250722
  Receipt Date: 20250722
  Transmission Date: 20251021
  Serious: Yes (Other)
  Sender: BAUSCH AND LOMB
  Company Number: US-BAUSCH-BH-2025-015144

PATIENT
  Age: 57 Year
  Sex: Female

DRUGS (2)
  1. CONTRAVE [Interacting]
     Active Substance: BUPROPION HYDROCHLORIDE\NALTREXONE HYDROCHLORIDE
     Indication: Product used for unknown indication
  2. WELLBUTRIN [Interacting]
     Active Substance: BUPROPION HYDROCHLORIDE
     Indication: Product used for unknown indication

REACTIONS (3)
  - Substance-induced psychotic disorder [Unknown]
  - Labelled drug-drug interaction issue [Unknown]
  - Contraindicated product administered [Unknown]
